FAERS Safety Report 6828386-9 (Version None)
Quarter: 2010Q3

REPORT INFORMATION
  Report Type: 
  Country: None (occurrence: None)
  Receive Date: 20100709
  Receipt Date: 20070404
  Transmission Date: 20110219
  Serious: Yes (Other)
  Sender: FDA-Public Use
  Company Number: US-PFIZER INC-2007010709

PATIENT
  Sex: Male
  Weight: 104.3 kg

DRUGS (3)
  1. CHANTIX [Suspect]
     Indication: EX-TOBACCO USER
     Dates: start: 20070101, end: 20070101
  2. LOTENSIN [Concomitant]
  3. WELLBUTRIN [Concomitant]

REACTIONS (1)
  - BLOOD PRESSURE INCREASED [None]
